FAERS Safety Report 7688135-1 (Version None)
Quarter: 2011Q3

REPORT INFORMATION
  Report Type: 
  Country: None (occurrence: None)
  Receive Date: 20110817
  Receipt Date: 20110804
  Transmission Date: 20111222
  Serious: Yes (Hospitalization)
  Sender: FDA-Public Use
  Company Number: FR-ELI_LILLY_AND_COMPANY-FR201108001398

PATIENT
  Age: 80 Year
  Sex: Female

DRUGS (7)
  1. DEPAKENE [Concomitant]
  2. CALCIUM CARBONATE [Concomitant]
  3. LITHIUM CARBONATE [Concomitant]
  4. ZYPREXA [Suspect]
     Indication: BIPOLAR DISORDER
     Dosage: 5 MG, QD
     Route: 048
     Dates: start: 20110630, end: 20110702
  5. LEVOTHYROXINE SODIUM [Concomitant]
  6. BISOPROLOL FUMARATE [Concomitant]
  7. LORAZEPAM [Concomitant]

REACTIONS (1)
  - STRESS CARDIOMYOPATHY [None]
